FAERS Safety Report 5568163-2 (Version None)
Quarter: 2007Q4

REPORT INFORMATION
  Report Type: 
  Country: None (occurrence: None)
  Receive Date: 20071220
  Receipt Date: 20071211
  Transmission Date: 20080405
  Serious: Yes (Other)
  Sender: FDA-Public Use
  Company Number: FR-NOVOPROD-270156

PATIENT
  Sex: Male

DRUGS (7)
  1. NOVONORM [Suspect]
     Indication: DRUG USE FOR UNKNOWN INDICATION
     Dosage: 3 MG, QD
     Route: 048
     Dates: start: 20071120, end: 20071121
  2. ZYLORIC                            /00003301/ [Concomitant]
     Indication: HYPERURICAEMIA
     Dosage: 100 MG, QD
     Route: 048
  3. SPECIAFOLDINE [Concomitant]
     Indication: ANAEMIA
     Dosage: 10 MG, QD
     Route: 048
  4. TARDYFERON                         /00023503/ [Concomitant]
     Indication: ANAEMIA
     Dosage: 160 MG, QD
     Route: 048
  5. INEXIUM                            /01479302/ [Concomitant]
     Dosage: 20 MG, QD
     Route: 048
  6. PREVISCAN                          /00261401/ [Concomitant]
     Indication: ATRIAL FIBRILLATION
     Dosage: 10 MG, QD
     Route: 048
  7. CALCIPRAT D3 [Concomitant]
     Indication: HYPOCALCAEMIA
     Dosage: 3 G, QD
     Route: 048

REACTIONS (5)
  - BRONCHOSPASM [None]
  - DEPRESSED LEVEL OF CONSCIOUSNESS [None]
  - HYPERHIDROSIS [None]
  - HYPOGLYCAEMIA [None]
  - RESPIRATORY DISORDER [None]
